FAERS Safety Report 7249326-7 (Version None)
Quarter: 2011Q1

REPORT INFORMATION
  Report Type: 
  Country: None (occurrence: None)
  Receive Date: 20110128
  Receipt Date: 20110119
  Transmission Date: 20110831
  Serious: Yes (Other)
  Sender: FDA-Public Use
  Company Number: JP-NOVOPROD-321029

PATIENT
  Age: 71 Year
  Sex: Female
  Weight: 37 kg

DRUGS (14)
  1. VICTOZA [Suspect]
     Dosage: 0.9 MG, QD
     Route: 058
     Dates: start: 20101027, end: 20101203
  2. GLYBURIDE [Concomitant]
     Dosage: 2.5 MG, QD
     Dates: start: 20100707
  3. MEVALOTIN [Concomitant]
     Dosage: 5 MG, QD
     Route: 048
  4. VICTOZA [Suspect]
     Dosage: 0.6 MG, QD
     Route: 058
     Dates: start: 20101014
  5. MAGMITT [Concomitant]
     Dosage: 1000 MG, QD
     Route: 048
  6. SENNOSIDE                          /00571901/ [Concomitant]
     Dosage: 2 TAB, QD
     Route: 048
  7. GLYBURIDE [Concomitant]
     Dosage: 7.5 MG, QD
     Dates: start: 20100720
  8. PAXIL [Concomitant]
     Dosage: 40 MG, QD
     Route: 048
  9. VICTOZA [Suspect]
     Indication: TYPE 2 DIABETES MELLITUS
     Dosage: 0.3 MG, QD
     Route: 058
     Dates: start: 20100930
  10. GLYBURIDE [Concomitant]
     Dosage: 10 MG, QD
     Dates: start: 20100727
  11. THYRADIN [Concomitant]
     Dosage: 50 UG, QD
     Route: 048
  12. GLYBURIDE [Concomitant]
     Dosage: 12.5 MG, QD
     Dates: start: 20100803
  13. VITAMEDIN                          /00274301/ [Concomitant]
     Dosage: 75 MG, QD
     Route: 048
  14. GLYBURIDE [Concomitant]
     Dosage: 5 MG, QD
     Dates: start: 20100713

REACTIONS (1)
  - HEPATIC FUNCTION ABNORMAL [None]
